FAERS Safety Report 8433580-X (Version None)
Quarter: 2012Q2

REPORT INFORMATION
  Report Type: 
  Country: None (occurrence: None)
  Receive Date: 20120613
  Receipt Date: 20120608
  Transmission Date: 20120825
  Serious: Yes (Congenital Anomaly, Other)
  Sender: FDA-Public Use
  Company Number: US-PFIZER INC-2012139945

PATIENT

DRUGS (1)
  1. ZOLOFT [Suspect]
     Dosage: UNK
     Route: 064
     Dates: start: 20060101

REACTIONS (10)
  - ATRIAL SEPTAL DEFECT [None]
  - OTITIS MEDIA [None]
  - DEVELOPMENTAL DELAY [None]
  - BRACHYCEPHALY [None]
  - PLAGIOCEPHALY [None]
  - CONGENITAL SCOLIOSIS [None]
  - BRONCHIAL HYPERREACTIVITY [None]
  - MATERNAL DRUGS AFFECTING FOETUS [None]
  - MATERNAL EXPOSURE TIMING UNSPECIFIED [None]
  - TORTICOLLIS [None]
